FAERS Safety Report 7379610-8 (Version None)
Quarter: 2011Q1

REPORT INFORMATION
  Report Type: 
  Country: None (occurrence: None)
  Receive Date: 20110318
  Receipt Date: 20110308
  Transmission Date: 20110831
  Serious: Yes (Hospitalization, Other)
  Sender: FDA-Public Use
  Company Number: 2010SP062590

PATIENT
  Age: 21 Year
  Sex: Female
  Weight: 48.9885 kg

DRUGS (2)
  1. NUVARING [Suspect]
     Indication: CONTRACEPTION
     Dates: start: 20080901, end: 20081214
  2. ACETYLSALICYLIC ACID W/CAFFEINE/SALICYLAMIDE [Concomitant]

REACTIONS (5)
  - OVARIAN CYST [None]
  - HEADACHE [None]
  - GYNAECOLOGICAL CHLAMYDIA INFECTION [None]
  - DEEP VEIN THROMBOSIS [None]
  - ABORTION [None]
